FAERS Safety Report 4857156-6 (Version None)
Quarter: 2005Q4

REPORT INFORMATION
  Report Type: 
  Country: None (occurrence: None)
  Receive Date: 20051215
  Receipt Date: 20051201
  Transmission Date: 20060501
  Serious: Yes (Other)
  Sender: FDA-Public Use
  Company Number: 28125

PATIENT
  Sex: Male

DRUGS (4)
  1. ALDARA [Suspect]
     Indication: CONDYLOMA ACUMINATUM
     Dosage: 3 DF WEEKLY (1 DOSAGE FORMS, 3 IN 1 WEEK (S)) TOPICAL
     Route: 061
     Dates: start: 20050701, end: 20050101
  2. ALDARA [Suspect]
     Indication: CONDYLOMA ACUMINATUM
     Dosage: 3 DF WEEKLY (1 DOSAGE FORMS, 3 IN 1 WEEK (S)) TOPICAL
     Route: 061
     Dates: start: 20051028, end: 20051102
  3. ALDARA [Suspect]
     Indication: CONDYLOMA ACUMINATUM
     Dosage: 3 DF WEEKLY (1 DOSAGE FORMS, 3 IN 1 WEEK (S)) TOPICAL
     Route: 061
     Dates: start: 20051108, end: 20051113
  4. ALDARA [Suspect]
     Indication: CONDYLOMA ACUMINATUM
     Dosage: 3 DF WEEKLY (1 DOSAGE FORMS, 3 IN 1 WEEK (S)) TOPICAL
     Route: 061
     Dates: start: 20051128

REACTIONS (6)
  - APPLICATION SITE ERYTHEMA [None]
  - APPLICATION SITE ULCER [None]
  - ASTHENIA [None]
  - LEUKOPENIA [None]
  - MONOCYTE PERCENTAGE INCREASED [None]
  - NEUTROPENIA [None]
